FAERS Safety Report 23655934 (Version 1)
Quarter: 2024Q1

REPORT INFORMATION
  Report Type: Spontaneous
  Country: GR (occurrence: GR)
  Receive Date: 20240321
  Receipt Date: 20240321
  Transmission Date: 20240409
  Serious: Yes (Other)
  Sender: FDA-Public Use
  Company Number: GR-009507513-2403GRC004742

PATIENT
  Sex: Male

DRUGS (1)
  1. RECARBRIO [Suspect]
     Active Substance: CILASTATIN\IMIPENEM ANHYDROUS\RELEBACTAM ANHYDROUS
     Dosage: 500 MILLIGRAM, EVERY 4 HOURS

REACTIONS (3)
  - Epilepsy [Unknown]
  - Microbiology test abnormal [Unknown]
  - Inappropriate schedule of product administration [Unknown]
